FAERS Safety Report 22181949 (Version 1)
Quarter: 2023Q2

REPORT INFORMATION
  Report Type: Spontaneous
  Country: GB (occurrence: GB)
  Receive Date: 20230406
  Receipt Date: 20230406
  Transmission Date: 20230722
  Serious: Yes (Other)
  Sender: FDA-Public Use
  Company Number: None

PATIENT
  Age: 81 Year
  Sex: Male
  Weight: 79 kg

DRUGS (17)
  1. CLINDAMYCIN HYDROCHLORIDE [Suspect]
     Active Substance: CLINDAMYCIN HYDROCHLORIDE
     Dosage: 300 MG, 4X/DAY (EVERY 6 HOURS)
     Dates: start: 20230321
  2. UMECLIDINIUM BROMIDE\VILANTEROL TRIFENATATE [Concomitant]
     Active Substance: UMECLIDINIUM BROMIDE\VILANTEROL TRIFENATATE
     Dosage: 1 DF, 1X/DAY
     Route: 055
     Dates: start: 20221018, end: 20230213
  3. FLUTICASONE FUROATE [Concomitant]
     Active Substance: FLUTICASONE FUROATE
     Dosage: UNK, 1X/DAY
     Dates: start: 20221018
  4. BETAMETHASONE VALERATE [Concomitant]
     Active Substance: BETAMETHASONE VALERATE
     Dosage: 1 DF, 2X/DAY
     Dates: start: 20230323
  5. BUMETANIDE [Concomitant]
     Active Substance: BUMETANIDE
     Dosage: 1 DF, 1X/DAY
     Dates: start: 20221013
  6. DIORALYTE [CITRIC ACID;GLUCOSE;POTASSIUM CHLORIDE;SODIUM BICARBONATE;S [Concomitant]
     Dosage: UNK
     Dates: start: 20230322
  7. DOXYCYCLINE [Concomitant]
     Active Substance: DOXYCYCLINE
     Dosage: 1 DF, 2X/DAY
     Dates: start: 20230321
  8. DULOXETINE [Concomitant]
     Active Substance: DULOXETINE
     Dosage: 1 DF, 1X/DAY
     Dates: start: 20230124, end: 20230307
  9. EDOXABAN [Concomitant]
     Active Substance: EDOXABAN
     Dosage: 1 DF, 1X/DAY
     Dates: start: 20221013
  10. ENALAPRIL [Concomitant]
     Active Substance: ENALAPRIL
     Dosage: 1 DF, 2X/DAY
     Dates: start: 20221013
  11. GABAPENTIN [Concomitant]
     Active Substance: GABAPENTIN
     Dosage: 1 DF, 1X/DAY
     Dates: start: 20221013
  12. HUMALOG [Concomitant]
     Active Substance: INSULIN LISPRO
     Dosage: 8 UNITS AT 8:30 AM AND 14 UNITS AT 20:30
     Dates: start: 20221018
  13. LANSOPRAZOLE [Concomitant]
     Active Substance: LANSOPRAZOLE
     Dosage: 1 DF, 1X/DAY
     Dates: start: 20221013
  14. LOPERAMIDE [Concomitant]
     Active Substance: LOPERAMIDE
     Dosage: 2 DF
     Dates: start: 20230322
  15. ACETAMINOPHEN [Concomitant]
     Active Substance: ACETAMINOPHEN
     Dosage: 2 DF, 3X/DAY
     Dates: start: 20221018
  16. ALBUTEROL [Concomitant]
     Active Substance: ALBUTEROL
     Dosage: INHALE 1 OR 2 DOSES AS NEEDED
     Route: 055
     Dates: start: 20221018
  17. BECLOMETHASONE DIPROPIONATE\FORMOTEROL FUMARATE\GLYCOPYRROLATE [Concomitant]
     Active Substance: BECLOMETHASONE DIPROPIONATE\FORMOTEROL FUMARATE\GLYCOPYRROLATE
     Dosage: 2 DF, 2X/DAY
     Dates: start: 20230213

REACTIONS (2)
  - Confusional state [Recovered/Resolved]
  - Diarrhoea [Unknown]
